FAERS Safety Report 8407222-3 (Version None)
Quarter: 2012Q2

REPORT INFORMATION
  Report Type: 
  Country: None (occurrence: None)
  Receive Date: 20120323
  Receipt Date: 20110520
  Transmission Date: 20120825
  Serious: Yes (Hospitalization)
  Sender: FDA-Public Use
  Company Number: 163-21880-11050340

PATIENT
  Age: 78 Year
  Sex: Male
  Weight: 95.0286 kg

DRUGS (4)
  1. DEXAMETHASONE [Concomitant]
  2. REVLIMID [Suspect]
     Indication: MULTIPLE MYELOMA
     Dosage: 25 MG, 1 IN 1 D, PO ; 5 MG, 1 IN 1 D, PO ; 5 MG, 3X PER WEEK, PO
     Route: 048
     Dates: start: 20100201
  3. REVLIMID [Suspect]
     Indication: MULTIPLE MYELOMA
     Dosage: 25 MG, 1 IN 1 D, PO ; 5 MG, 1 IN 1 D, PO ; 5 MG, 3X PER WEEK, PO
     Route: 048
     Dates: start: 20091005
  4. REVLIMID [Suspect]
     Indication: MULTIPLE MYELOMA
     Dosage: 25 MG, 1 IN 1 D, PO ; 5 MG, 1 IN 1 D, PO ; 5 MG, 3X PER WEEK, PO
     Route: 048
     Dates: start: 20090901

REACTIONS (3)
  - PNEUMONIA [None]
  - ANAEMIA [None]
  - THROMBOCYTOPENIA [None]
